FAERS Safety Report 4423932-7 (Version None)
Quarter: 2004Q3

REPORT INFORMATION
  Report Type: 
  Country: None (occurrence: None)
  Receive Date: 20040805
  Receipt Date: 20040722
  Transmission Date: 20050211
  Serious: No
  Sender: FDA-Public Use
  Company Number: 04P-167-0267838-00

PATIENT
  Age: 52 Year
  Sex: Male

DRUGS (2)
  1. VALPROATE SODIUM [Suspect]
     Dosage: PER ORAL
     Route: 048
  2. CLOZAPINE [Suspect]
     Indication: SCHIZOPHRENIA
     Dosage: PER ORAL
     Route: 048
     Dates: start: 20040202

REACTIONS (3)
  - CIRCULATORY COLLAPSE [None]
  - MEDICATION ERROR [None]
  - SCHIZOPHRENIA [None]
